FAERS Safety Report 5241589-2 (Version None)
Quarter: 2007Q1

REPORT INFORMATION
  Report Type: 
  Country: None (occurrence: None)
  Receive Date: 20070212
  Receipt Date: 20070212
  Transmission Date: 20070707
  Serious: Yes (Hospitalization)
  Sender: FDA-Public Use
  Company Number: None

PATIENT
  Sex: Female
  Weight: 55.4 kg

DRUGS (3)
  1. CYCLOPHOSPHAMIDE [Suspect]
     Indication: ACUTE LYMPHOCYTIC LEUKAEMIA
     Dosage: 1520 MG
     Dates: end: 20061104
  2. CYTARABINE [Suspect]
     Dosage: 9120 MG
     Dates: end: 20061206
  3. METHOTREXATE [Suspect]
     Dosage: 15 MG
     Dates: end: 20061103

REACTIONS (18)
  - ALANINE AMINOTRANSFERASE INCREASED [None]
  - ASPARTATE AMINOTRANSFERASE INCREASED [None]
  - BLOOD CULTURE POSITIVE [None]
  - CATHETER RELATED INFECTION [None]
  - CLOSTRIDIUM COLITIS [None]
  - HAEMOGLOBIN DECREASED [None]
  - HERPES ZOSTER DISSEMINATED [None]
  - LACUNAR INFARCTION [None]
  - NAUSEA [None]
  - NEUTROPENIC COLITIS [None]
  - NEUTROPHIL COUNT DECREASED [None]
  - PAIN [None]
  - PLATELET COUNT DECREASED [None]
  - PSEUDOMEMBRANOUS COLITIS [None]
  - SINUS DISORDER [None]
  - SYNCOPE [None]
  - VOMITING [None]
  - WHITE BLOOD CELL COUNT DECREASED [None]
